FAERS Safety Report 14756768 (Version 1)
Quarter: 2018Q2

REPORT INFORMATION
  Report Type: Spontaneous
  Country: US (occurrence: US)
  Receive Date: 20180413
  Receipt Date: 20180413
  Transmission Date: 20180711
  Serious: No
  Sender: FDA-Public Use
  Company Number: US-BION-006528

PATIENT
  Sex: Female

DRUGS (1)
  1. EQUATE NAPROXEN SODIUM [Suspect]
     Active Substance: NAPROXEN SODIUM
     Indication: BACK PAIN
     Dosage: 1-2 SOFT GEL EVERY 8 HOURS ?ONE SOFT-GEL IN THE MORNING AND ONE SOFT-GEL IN THE EVENING
     Route: 048
     Dates: start: 20170701, end: 20170714

REACTIONS (3)
  - Incorrect dosage administered [Not Recovered/Not Resolved]
  - Drug ineffective [Not Recovered/Not Resolved]
  - Incorrect drug administration duration [Not Recovered/Not Resolved]

NARRATIVE: CASE EVENT DATE: 20170714
